FAERS Safety Report 12047727 (Version 3)
Quarter: 2016Q2

REPORT INFORMATION
  Report Type: Spontaneous
  Country: US (occurrence: US)
  Receive Date: 20160209
  Receipt Date: 20160524
  Transmission Date: 20160815
  Serious: Yes (Other)
  Sender: FDA-Public Use
  Company Number: US-ASTRAZENECA-2012SE74451

PATIENT
  Age: 75 Year
  Sex: Female
  Weight: 95.3 kg

DRUGS (35)
  1. NORVASC [Concomitant]
     Active Substance: AMLODIPINE BESYLATE
  2. METHOTREXATE [Concomitant]
     Active Substance: METHOTREXATE
     Dates: start: 20090505
  3. PAXIL [Concomitant]
     Active Substance: PAROXETINE HYDROCHLORIDE
     Dates: start: 20080805
  4. NAPROXEN. [Concomitant]
     Active Substance: NAPROXEN
  5. MINTOX [Concomitant]
     Active Substance: ALUMINUM HYDROXIDE\DIMETHICONE\MAGNESIUM HYDROXIDE
  6. RAMIPRIL. [Concomitant]
     Active Substance: RAMIPRIL
  7. ULTRAM [Concomitant]
     Active Substance: TRAMADOL HYDROCHLORIDE
     Dates: start: 20090109
  8. PHENAZOPYRIDINE HCL [Concomitant]
     Active Substance: PHENAZOPYRIDINE HYDROCHLORIDE
     Dosage: 200.0MG UNKNOWN
     Route: 048
  9. COLCRYS [Concomitant]
     Active Substance: COLCHICINE
  10. ALLOPURINOL. [Concomitant]
     Active Substance: ALLOPURINOL
     Dosage: 100.0MG UNKNOWN
     Route: 048
  11. CRESTOR [Suspect]
     Active Substance: ROSUVASTATIN CALCIUM
     Indication: BLOOD CHOLESTEROL INCREASED
     Route: 048
     Dates: start: 20081203
  12. GLIMEPIRIDE. [Concomitant]
     Active Substance: GLIMEPIRIDE
     Dosage: 2.0MG UNKNOWN
     Route: 048
  13. ADVAIR HFA [Concomitant]
     Active Substance: FLUTICASONE PROPIONATE\SALMETEROL XINAFOATE
  14. JANUMET [Concomitant]
     Active Substance: METFORMIN HYDROCHLORIDE\SITAGLIPTIN PHOSPHATE
     Route: 048
     Dates: start: 20140818
  15. CRESTOR [Suspect]
     Active Substance: ROSUVASTATIN CALCIUM
     Indication: BLOOD CHOLESTEROL INCREASED
     Route: 048
     Dates: start: 2004, end: 2014
  16. ASPIRIN. [Concomitant]
     Active Substance: ASPIRIN
  17. TRICOR [Concomitant]
     Active Substance: FENOFIBRATE
  18. AMBIEN [Concomitant]
     Active Substance: ZOLPIDEM TARTRATE
  19. PREDNISONE. [Concomitant]
     Active Substance: PREDNISONE
     Dates: start: 20070112
  20. LORATADINE. [Concomitant]
     Active Substance: LORATADINE
     Dates: start: 20140213
  21. LEVOFLOXACIN. [Concomitant]
     Active Substance: LEVOFLOXACIN
     Dosage: 500.0MG UNKNOWN
     Route: 048
  22. HYDRALAZINE [Concomitant]
     Active Substance: HYDRALAZINE HYDROCHLORIDE
  23. CRESTOR [Suspect]
     Active Substance: ROSUVASTATIN CALCIUM
     Indication: BLOOD CHOLESTEROL INCREASED
     Route: 048
     Dates: start: 2014
  24. NEXIUM [Concomitant]
     Active Substance: ESOMEPRAZOLE MAGNESIUM
     Indication: ABDOMINAL DISCOMFORT
     Dates: start: 2008, end: 2009
  25. FOLIC ACID. [Concomitant]
     Active Substance: FOLIC ACID
     Dates: start: 20090304
  26. CRESTOR [Suspect]
     Active Substance: ROSUVASTATIN CALCIUM
     Indication: BLOOD CHOLESTEROL INCREASED
     Route: 048
     Dates: start: 20081126
  27. JANUVIA [Concomitant]
     Active Substance: SITAGLIPTIN PHOSPHATE
  28. TAMOXIFEN [Concomitant]
     Active Substance: TAMOXIFEN
     Dates: start: 20131219
  29. VYTORIN [Concomitant]
     Active Substance: EZETIMIBE\SIMVASTATIN
  30. DIOVAN [Concomitant]
     Active Substance: VALSARTAN
  31. PROTONIX [Concomitant]
     Active Substance: PANTOPRAZOLE SODIUM
  32. LIPITOR [Concomitant]
     Active Substance: ATORVASTATIN CALCIUM
  33. MICARDIS [Concomitant]
     Active Substance: TELMISARTAN
     Dates: start: 20140716
  34. LOVAZA [Concomitant]
     Active Substance: OMEGA-3-ACID ETHYL ESTERS
  35. BYSTOLIC [Concomitant]
     Active Substance: NEBIVOLOL HYDROCHLORIDE
     Dates: start: 20130326

REACTIONS (6)
  - Hypertension [Unknown]
  - Diabetes mellitus [Not Recovered/Not Resolved]
  - Angina pectoris [Unknown]
  - Arrhythmia [Unknown]
  - Blood triglycerides increased [Unknown]
  - Diabetic neuropathy [Unknown]

NARRATIVE: CASE EVENT DATE: 2006
